FAERS Safety Report 15583019 (Version 2)
Quarter: 2018Q4

REPORT INFORMATION
  Report Type: Spontaneous
  Country: JP (occurrence: JP)
  Receive Date: 20181105
  Receipt Date: 20181112
  Transmission Date: 20190205
  Serious: Yes (Life-Threatening, Hospitalization)
  Sender: FDA-Public Use
  Company Number: JP-TEVA-2018-JP-972053

PATIENT
  Age: 27 Year
  Sex: Male

DRUGS (2)
  1. ETOPOSIDE. [Suspect]
     Active Substance: ETOPOSIDE
     Indication: TESTICULAR CANCER METASTATIC
     Route: 065
  2. CISPLATIN. [Suspect]
     Active Substance: CISPLATIN
     Indication: TESTICULAR CANCER METASTATIC
     Route: 065

REACTIONS (2)
  - Acute respiratory distress syndrome [Recovering/Resolving]
  - Condition aggravated [Recovering/Resolving]
